FAERS Safety Report 10908034 (Version 1)
Quarter: 2015Q1

REPORT INFORMATION
  Report Type: Spontaneous
  Country: US (occurrence: US)
  Receive Date: 20150312
  Receipt Date: 20150312
  Transmission Date: 20150721
  Serious: Yes (Other)
  Sender: FDA-Public Use
  Company Number: US-INCYTE CORPORATION-2014IN003606

PATIENT
  Sex: Female
  Weight: 61.22 kg

DRUGS (8)
  1. JAKAFI [Suspect]
     Active Substance: RUXOLITINIB
     Dosage: 20 MG, BID
     Route: 048
     Dates: start: 201411
  2. HYDROCHLOROTHIAZIDE. [Concomitant]
     Active Substance: HYDROCHLOROTHIAZIDE
     Dosage: 12.5 MG
  3. MULTIVITAMIN                       /00097801/ [Concomitant]
     Active Substance: VITAMINS
  4. JAKAFI [Suspect]
     Active Substance: RUXOLITINIB
     Dosage: 10 MG AM AND 5 MG PM
     Route: 048
  5. ASPIRIN. [Concomitant]
     Active Substance: ASPIRIN
     Dosage: 81 MG
  6. IRON [Concomitant]
     Active Substance: IRON
     Dosage: 18 MG
  7. JAKAFI [Suspect]
     Active Substance: RUXOLITINIB
     Indication: MYELOFIBROSIS
     Dosage: 20 MG, BID
     Route: 048
     Dates: start: 20141029
  8. ECOTRIN [Concomitant]
     Active Substance: ASPIRIN
     Dosage: 325 MG

REACTIONS (6)
  - Body height decreased [Unknown]
  - Weight increased [Unknown]
  - Haemoglobin decreased [Unknown]
  - Drug dose omission [Unknown]
  - Weight decreased [Unknown]
  - Decreased appetite [Unknown]
